FAERS Safety Report 8894233 (Version 3)
Quarter: 2013Q1

REPORT INFORMATION
  Report Type: Spontaneous
  Country: BR (occurrence: BR)
  Receive Date: 20121108
  Receipt Date: 20130122
  Transmission Date: 20140127
  Serious: Yes (Other)
  Sender: FDA-Public Use
  Company Number: BR-PFIZER INC-2012270810

PATIENT
  Age: 61 Year
  Sex: Male
  Weight: 60 kg

DRUGS (5)
  1. SUTENT [Suspect]
     Indication: RENAL CANCER
     Dosage: 50 MG (1 TABLET OF 25 MG AND 2 TABLETS OF 12.5 MG)
     Route: 048
     Dates: start: 20121010
  2. SUTENT [Suspect]
     Indication: RENAL CELL CARCINOMA
     Dosage: 50 MG (1 TABLET OF 25 MG AND 2 TABLETS OF 12.5 MG)
     Dates: start: 20121120, end: 20121217
  3. ENALAPRIL MALEATE [Concomitant]
     Dosage: 10 MG, 1X/DAY
  4. OMEPRAZOL [Concomitant]
  5. IMOSEC [Concomitant]
     Dosage: UNSPECIFIED DOSE, AS NEEDED

REACTIONS (13)
  - Haematocrit decreased [Unknown]
  - Feeding disorder [Unknown]
  - Hepatotoxicity [Unknown]
  - Hypotension [Unknown]
  - Hypertension [Unknown]
  - Weight decreased [Unknown]
  - Abdominal distension [Unknown]
  - Headache [Unknown]
  - Ageusia [Unknown]
  - Epistaxis [Unknown]
  - Oral pain [Unknown]
  - Mouth ulceration [Unknown]
  - Skin wound [Unknown]
